FAERS Safety Report 23449091 (Version 1)
Quarter: 2024Q1

REPORT INFORMATION
  Report Type: Spontaneous
  Country: CN (occurrence: None)
  Receive Date: 20240128
  Receipt Date: 20240128
  Transmission Date: 20240409
  Serious: Yes (Other)
  Sender: FDA-Public Use
  Company Number: 2024A019466

PATIENT
  Age: 16071 Day
  Sex: Female

DRUGS (1)
  1. TAGRISSO [Suspect]
     Active Substance: OSIMERTINIB
     Indication: Lung adenocarcinoma stage III
     Route: 048
     Dates: start: 20240122

REACTIONS (4)
  - Blood pressure increased [Unknown]
  - Electrocardiogram QT interval abnormal [Unknown]
  - Heart rate abnormal [Unknown]
  - Cardiac discomfort [Unknown]
